FAERS Safety Report 6118600-X (Version None)
Quarter: 2009Q1

REPORT INFORMATION
  Report Type: 
  Country: None (occurrence: None)
  Receive Date: 20090314
  Receipt Date: 20090221
  Transmission Date: 20090719
  Serious: No
  Sender: FDA-Public Use
  Company Number: US-ABBOTT-09P-163-0558827-00

PATIENT
  Sex: Male
  Weight: 95.34 kg

DRUGS (4)
  1. HUMIRA [Suspect]
     Indication: RHEUMATOID ARTHRITIS
     Dates: start: 20081010
  2. XANAX [Concomitant]
     Indication: DRUG USE FOR UNKNOWN INDICATION
  3. TOPROL-XL [Concomitant]
     Indication: DRUG USE FOR UNKNOWN INDICATION
  4. PIROXICAM [Concomitant]
     Indication: DRUG USE FOR UNKNOWN INDICATION

REACTIONS (4)
  - ERYTHEMA [None]
  - MASS [None]
  - PAIN [None]
  - TINEA CRURIS [None]
